FAERS Safety Report 7739689-8 (Version None)
Quarter: 2011Q3

REPORT INFORMATION
  Report Type: 
  Country: None (occurrence: None)
  Receive Date: 20110909
  Receipt Date: 20110831
  Transmission Date: 20111222
  Serious: Yes (Other)
  Sender: FDA-Public Use
  Company Number: FR-ASTRAZENECA-2011SE53031

PATIENT
  Age: 20646 Day
  Sex: Female
  Weight: 51 kg

DRUGS (2)
  1. VANDETANIB [Suspect]
     Indication: THYROID CANCER
     Route: 048
     Dates: start: 20110721, end: 20110812
  2. VANDETANIB [Suspect]
     Route: 048
     Dates: start: 20110822

REACTIONS (1)
  - ERYTHROSIS [None]
